FAERS Safety Report 21761125 (Version 2)
Quarter: 2023Q2

REPORT INFORMATION
  Report Type: Spontaneous
  Country: SE (occurrence: SE)
  Receive Date: 20221221
  Receipt Date: 20230622
  Transmission Date: 20230722
  Serious: Yes (Other)
  Sender: FDA-Public Use
  Company Number: None

PATIENT
  Age: 49 Year
  Sex: Female

DRUGS (2)
  1. MABTHERA [Suspect]
     Active Substance: RITUXIMAB
     Indication: Multiple sclerosis
     Dosage: 500 MG (6 CYCLES ADMINISTERED AT TIME OF EVENT)
     Dates: start: 20171004, end: 20201112
  2. RITUXIMAB [Suspect]
     Active Substance: RITUXIMAB
     Indication: Multiple sclerosis
     Dosage: 500 MG (1 CYCLE ADMINISTERED AT TIME OF EVENT)
     Dates: start: 20220609

REACTIONS (3)
  - Gastric sarcoma [Unknown]
  - Gastrointestinal stromal tumour [Unknown]
  - Off label use [Unknown]

NARRATIVE: CASE EVENT DATE: 20171004
